FAERS Safety Report 20537328 (Version 2)
Quarter: 2022Q1

REPORT INFORMATION
  Report Type: Spontaneous
  Country: US (occurrence: US)
  Receive Date: 20220302
  Receipt Date: 20220317
  Transmission Date: 20220423
  Serious: Yes (Other)
  Sender: FDA-Public Use
  Company Number: US-PFIZER INC-202200291592

PATIENT
  Age: 56 Year
  Sex: Female
  Weight: 58.957 kg

DRUGS (2)
  1. FLAGYL [Suspect]
     Active Substance: METRONIDAZOLE\METRONIDAZOLE HYDROCHLORIDE
     Indication: Bacterial vaginosis
     Dosage: UNK, (TOOK 3PILLS OVER 3 DAYS)
     Dates: start: 20220209
  2. AMITRIPTYLINE [Concomitant]
     Active Substance: AMITRIPTYLINE
     Dosage: 25 MG
     Dates: start: 20220204, end: 20220214

REACTIONS (3)
  - Stevens-Johnson syndrome [Unknown]
  - Tongue ulceration [Recovered/Resolved]
  - Tongue coated [Unknown]

NARRATIVE: CASE EVENT DATE: 20220210
